FAERS Safety Report 20430809 (Version 1)
Quarter: 2022Q1

REPORT INFORMATION
  Report Type: Report from Study
  Country: FR (occurrence: FR)
  Receive Date: 20220204
  Receipt Date: 20220204
  Transmission Date: 20220423
  Serious: Yes (Other)
  Sender: FDA-Public Use
  Company Number: FR-SERVIER-S21006063

PATIENT

DRUGS (4)
  1. PEGASPARGASE [Suspect]
     Active Substance: PEGASPARGASE
     Indication: Acute lymphocytic leukaemia
     Dosage: 2100 IU
     Route: 042
     Dates: start: 20191105, end: 20200227
  2. TN UNSPECIFIED [Concomitant]
     Indication: Acute lymphocytic leukaemia
     Dosage: 1.3 MG
     Route: 042
     Dates: start: 20200224, end: 20200309
  3. TN UNSPECIFIED [Concomitant]
     Indication: Acute lymphocytic leukaemia
     Dosage: 21 MG
     Route: 042
     Dates: start: 20200224, end: 20200309
  4. TN UNSPECIFIED [Concomitant]
     Indication: Acute lymphocytic leukaemia
     Dosage: 9.7 MG
     Route: 048
     Dates: start: 20200220, end: 20200309

REACTIONS (1)
  - Hyperlipidaemia [Recovered/Resolved]

NARRATIVE: CASE EVENT DATE: 20200312
